FAERS Safety Report 5768985-9 (Version None)
Quarter: 2008Q2

REPORT INFORMATION
  Report Type: 
  Country: None (occurrence: None)
  Receive Date: 20080612
  Receipt Date: 20080325
  Transmission Date: 20081010
  Serious: Yes (Hospitalization)
  Sender: FDA-Public Use
  Company Number: US-ABBOTT-08P-163-0443021-00

PATIENT
  Sex: Male
  Weight: 63.106 kg

DRUGS (5)
  1. HUMIRA [Suspect]
     Indication: RHEUMATOID ARTHRITIS
     Route: 058
     Dates: start: 20070101
  2. HUMIRA [Suspect]
     Route: 058
     Dates: start: 20050101, end: 20070101
  3. LISINOPRIL [Concomitant]
     Indication: HYPERTENSION
     Route: 048
  4. EZETIMIBE [Concomitant]
     Indication: HYPERLIPIDAEMIA
     Route: 048
  5. SIMVASTATIN [Concomitant]
     Indication: HYPERLIPIDAEMIA

REACTIONS (2)
  - PAIN [None]
  - STAPHYLOCOCCAL SEPSIS [None]
